FAERS Safety Report 9161169 (Version 1)
Quarter: 2013Q1

REPORT INFORMATION
  Report Type: Spontaneous
  Country: US (occurrence: US)
  Receive Date: 20130313
  Receipt Date: 20130313
  Transmission Date: 20140127
  Serious: Yes (Hospitalization)
  Sender: FDA-Public Use
  Company Number: US-GLAXOSMITHKLINE-A0790731A

PATIENT
  Sex: Female

DRUGS (3)
  1. AVANDIA [Suspect]
     Indication: DIABETES MELLITUS
     Dosage: 8MG PER DAY
     Route: 048
     Dates: start: 200503, end: 200711
  2. AVANDAMET [Suspect]
     Indication: DIABETES MELLITUS
     Dosage: 1TAB PER DAY
     Route: 048
     Dates: start: 200406, end: 200503
  3. CELEBREX [Concomitant]

REACTIONS (5)
  - Aortic stenosis [Not Recovered/Not Resolved]
  - Pain [Unknown]
  - Dyspnoea [Unknown]
  - Oedema [Unknown]
  - Fatigue [Unknown]
